FAERS Safety Report 7888783-X (Version None)
Quarter: 2011Q4

REPORT INFORMATION
  Report Type: 
  Country: None (occurrence: None)
  Receive Date: 20111102
  Receipt Date: 20111102
  Transmission Date: 20120403
  Serious: Yes (Other)
  Sender: FDA-Public Use
  Company Number: None

PATIENT
  Sex: Male
  Weight: 101.6057 kg

DRUGS (1)
  1. PRADAXA [Suspect]
     Indication: ATRIAL FIBRILLATION
     Dosage: PRADAXA 150 MG BID PO
     Route: 048
     Dates: start: 20110727, end: 20110927

REACTIONS (3)
  - FALL [None]
  - DIZZINESS [None]
  - HYPERTENSION [None]
